FAERS Safety Report 6983175-X (Version None)
Quarter: 2010Q3

REPORT INFORMATION
  Report Type: 
  Country: None (occurrence: None)
  Receive Date: 20100914
  Receipt Date: 20100622
  Transmission Date: 20110219
  Serious: Yes (Other)
  Sender: FDA-Public Use
  Company Number: US-PFIZER INC-2010070605

PATIENT
  Sex: Male
  Weight: 118 kg

DRUGS (3)
  1. LYRICA [Suspect]
     Indication: FIBROMYALGIA
     Dosage: UNK, 2X/DAY
     Route: 048
     Dates: start: 20100501
  2. LYRICA [Suspect]
     Indication: RHEUMATOID ARTHRITIS
  3. ETANERCEPT [Concomitant]
     Dosage: 50 MG, WEEKLY

REACTIONS (1)
  - VISION BLURRED [None]
